FAERS Safety Report 19818021 (Version 1)
Quarter: 2021Q3

REPORT INFORMATION
  Report Type: Other
  Country: CA (occurrence: CA)
  Receive Date: 20210911
  Receipt Date: 20210911
  Transmission Date: 20211014
  Serious: Yes (Other)
  Sender: FDA-Public Use
  Company Number: CA-CELLTRION INC.-2021CA012153

PATIENT

DRUGS (14)
  1. VITAMIN D [Concomitant]
     Active Substance: VITAMIN D NOS
  2. LASIX [Concomitant]
     Active Substance: FUROSEMIDE
     Dosage: 40.0 MILLIGRAM
     Route: 065
  3. SINUS RINSE [Concomitant]
     Active Substance: SODIUM BICARBONATE\SODIUM CHLORIDE
     Dosage: UNK, (SOLUTION NASAL)
  4. BOSENTAN. [Concomitant]
     Active Substance: BOSENTAN
     Dosage: 125.0 MILLIGRAM, 2 EVERY 1 DAY
     Route: 065
  5. NIFEDIPINE. [Concomitant]
     Active Substance: NIFEDIPINE
     Dosage: 30.0 MILLIGRAM
     Route: 065
  6. PREVACID [Concomitant]
     Active Substance: LANSOPRAZOLE
     Dosage: 30.0 MILLIGRAM
     Route: 065
  7. TADALAFIL. [Concomitant]
     Active Substance: TADALAFIL
     Dosage: 40.0 MILLIGRAM, 1 EVERY 1 DAY
     Route: 065
  8. URSODIOL. [Concomitant]
     Active Substance: URSODIOL
     Dosage: 500.0 MILLIGRAM, 2 EVERY 1 DAYS
     Route: 065
  9. VENTOLIN [Concomitant]
     Active Substance: ALBUTEROL SULFATE
  10. ELTROXIN [Concomitant]
     Active Substance: LEVOTHYROXINE
     Dosage: 0.1 MILLIGRAM
     Route: 065
  11. RITUXIMAB. [Suspect]
     Active Substance: RITUXIMAB
     Indication: RHEUMATOID ARTHRITIS
     Dosage: 500.0 MILLIGRAM
     Route: 042
  12. ATACAND [Concomitant]
     Active Substance: CANDESARTAN CILEXETIL
     Dosage: 8.0 MILLIGRAM
     Route: 065
  13. FERROUS FUMARATE [Concomitant]
     Active Substance: FERROUS FUMARATE
     Dosage: 300.0 MILLIGRAM
     Route: 065
  14. HYDROXYCHLOROQUINE [Concomitant]
     Active Substance: HYDROXYCHLOROQUINE
     Dosage: 200.0 MILLIGRAM
     Route: 065

REACTIONS (2)
  - Follicular lymphoma [Unknown]
  - Underdose [Unknown]
